FAERS Safety Report 4986937-3 (Version None)
Quarter: 2006Q2

REPORT INFORMATION
  Report Type: 
  Country: None (occurrence: None)
  Receive Date: 20060501
  Receipt Date: 20060427
  Transmission Date: 20061013
  Serious: Yes (Hospitalization)
  Sender: FDA-Public Use
  Company Number: 2006AP01977

PATIENT
  Age: 50 Year
  Sex: Female

DRUGS (1)
  1. OMEPRAZON [Suspect]
     Indication: REFLUX OESOPHAGITIS
     Route: 048
     Dates: start: 20060320, end: 20060410

REACTIONS (1)
  - INTERSTITIAL LUNG DISEASE [None]
